FAERS Safety Report 9330802 (Version 1)
Quarter: 2013Q2

REPORT INFORMATION
  Report Type: Spontaneous
  Country: US (occurrence: None)
  Receive Date: 20130604
  Receipt Date: 20130604
  Transmission Date: 20140414
  Serious: Yes (Disabling)
  Sender: FDA-Public Use
  Company Number: None

PATIENT
  Age: 68 Year
  Sex: Male
  Weight: 76.2 kg

DRUGS (10)
  1. LACISERT [Suspect]
     Indication: EYE DISORDER
     Dosage: ONCE A DAY
     Route: 031
  2. WARFARIN [Concomitant]
  3. CARVEDILOL [Concomitant]
  4. LANTUS [Concomitant]
  5. NOVOLOG [Concomitant]
  6. ISOSORBIDE [Concomitant]
  7. HYDRALAZINE [Concomitant]
  8. BUMETADINE [Concomitant]
  9. TRIPHROCAPS [Concomitant]
  10. MAXITROL [Concomitant]

REACTIONS (2)
  - Blindness [None]
  - Fall [None]
